FAERS Safety Report 20524748 (Version 2)
Quarter: 2022Q1

REPORT INFORMATION
  Report Type: Spontaneous
  Country: GB (occurrence: GB)
  Receive Date: 20220228
  Receipt Date: 20220314
  Transmission Date: 20220424
  Serious: Yes (Hospitalization, Other)
  Sender: FDA-Public Use
  Company Number: None

PATIENT

DRUGS (4)
  1. IBUPROFEN [Suspect]
     Active Substance: IBUPROFEN
  2. PREDNISOLONE [Suspect]
     Active Substance: PREDNISOLONE
  3. MODERNA COVID-19 VACCINE [Suspect]
     Active Substance: ELASOMERAN
     Dosage: DOSE 3C
     Dates: start: 20210131
  4. COLCHICINE [Concomitant]
     Active Substance: COLCHICINE
     Dosage: UNK

REACTIONS (9)
  - Chest pain [Unknown]
  - Pleuropericarditis [Unknown]
  - Dyspnoea [Unknown]
  - Syncope [Unknown]
  - Fatigue [Unknown]
  - Pyrexia [Unknown]
  - Pericarditis [Recovering/Resolving]
  - Pericardial effusion [Recovered/Resolved]
  - Dyspnoea [Recovered/Resolved]

NARRATIVE: CASE EVENT DATE: 20220115
